FAERS Safety Report 4483696-8 (Version None)
Quarter: 2004Q4

REPORT INFORMATION
  Report Type: 
  Country: None (occurrence: None)
  Receive Date: 20041021
  Receipt Date: 20041006
  Transmission Date: 20050328
  Serious: Yes (Death, Hospitalization)
  Sender: FDA-Public Use
  Company Number: 2004AL000642

PATIENT
  Age: 22 Month
  Sex: Male
  Weight: 12 kg

DRUGS (2)
  1. CHILDREN'S APAP ELIXIR (ACETAMINOPHEN) (ALPHARMA) [Suspect]
     Indication: VIRAL INFECTION
     Dosage: Q4H; PO
     Route: 048
  2. INFANTS' APAP (DROPS (ACETAMINOPHEN) (ALPHARMA) [Suspect]
     Indication: VIRAL INFECTION
     Dosage: Q4H; PO
     Route: 048

REACTIONS (9)
  - ALANINE AMINOTRANSFERASE INCREASED [None]
  - AMMONIA INCREASED [None]
  - ASPARTATE AMINOTRANSFERASE INCREASED [None]
  - HEPATOMEGALY [None]
  - INTERNATIONAL NORMALISED RATIO INCREASED [None]
  - LETHARGY [None]
  - MEDICATION ERROR [None]
  - OVERDOSE [None]
  - VOMITING [None]
